FAERS Safety Report 14839215 (Version 1)
Quarter: 2018Q2

REPORT INFORMATION
  Report Type: Spontaneous
  Country: US (occurrence: US)
  Receive Date: 20180502
  Receipt Date: 20180502
  Transmission Date: 20180711
  Serious: Yes (Other)
  Sender: FDA-Public Use
  Company Number: US-NOVOPROD-597158

PATIENT
  Age: 55 Year
  Sex: Female

DRUGS (5)
  1. NOVOLOG [Suspect]
     Active Substance: INSULIN ASPART
     Dosage: VARIES
     Route: 058
     Dates: start: 1998
  2. LANTUS [Concomitant]
     Active Substance: INSULIN GLARGINE
     Indication: TYPE 2 DIABETES MELLITUS
     Dosage: UNK
     Route: 058
  3. NOVOLOG [Suspect]
     Active Substance: INSULIN ASPART
     Indication: TYPE 2 DIABETES MELLITUS
     Dosage: VARIES
     Route: 058
     Dates: start: 1998
  4. NOVOLOG [Suspect]
     Active Substance: INSULIN ASPART
     Dosage: VARIES
     Route: 058
     Dates: start: 1998
  5. NOVOLOG [Suspect]
     Active Substance: INSULIN ASPART
     Dosage: VARIES
     Route: 058
     Dates: start: 1998

REACTIONS (3)
  - Concussion [Not Recovered/Not Resolved]
  - Expired product administered [Recovered/Resolved]
  - Blood glucose increased [Not Recovered/Not Resolved]

NARRATIVE: CASE EVENT DATE: 20130605
